FAERS Safety Report 4849698-4 (Version None)
Quarter: 2005Q4

REPORT INFORMATION
  Report Type: 
  Country: None (occurrence: None)
  Receive Date: 20051115
  Receipt Date: 20050822
  Transmission Date: 20060501
  Serious: No
  Sender: FDA-Public Use
  Company Number: S05-USA-04088-01

PATIENT
  Age: 65 Year
  Sex: Male

DRUGS (8)
  1. NAMENDA [Suspect]
     Indication: AMNESIA
     Dosage: 5 MG QD PO
     Route: 048
     Dates: start: 20050816
  2. ARICEPT [Concomitant]
  3. CRESTOR [Concomitant]
  4. ZETIA [Concomitant]
  5. COREG [Concomitant]
  6. ACEON [Concomitant]
  7. ZOLOFT [Concomitant]
  8. ENDURACIN (NICOTINIC ACID) [Concomitant]

REACTIONS (1)
  - ABNORMAL DREAMS [None]
